FAERS Safety Report 6611575-6 (Version None)
Quarter: 2010Q1

REPORT INFORMATION
  Report Type: 
  Country: None (occurrence: None)
  Receive Date: 20100303
  Receipt Date: 20100226
  Transmission Date: 20100710
  Serious: Yes (Life-Threatening, Other)
  Sender: FDA-Public Use
  Company Number: PHHY2009FR56171

PATIENT
  Age: 86 Year
  Sex: Male

DRUGS (5)
  1. RASILEZ [Suspect]
     Indication: HYPERTENSION
     Dosage: 150 MG, QD
     Route: 048
     Dates: start: 20091206, end: 20091209
  2. NOVONORM [Concomitant]
     Indication: TYPE 2 DIABETES MELLITUS
     Dosage: 1.5 DF, DAILY
     Dates: start: 20000101
  3. KAYEXALATE [Concomitant]
     Indication: RENAL FAILURE
     Dosage: UNK
     Dates: start: 20070101
  4. FUROSEMIDE [Concomitant]
     Indication: RENAL FAILURE
     Dosage: 40 MG, DAILY
     Dates: start: 20050101
  5. BISOPROLOL [Concomitant]
     Indication: CARDIAC DISORDER
     Dosage: 0.5 DF, DAILY
     Dates: start: 20000101

REACTIONS (11)
  - ASTHENIA [None]
  - DECREASED APPETITE [None]
  - DISTURBANCE IN ATTENTION [None]
  - DIZZINESS [None]
  - FEELING ABNORMAL [None]
  - HEADACHE [None]
  - NAUSEA [None]
  - OLIGURIA [None]
  - RENAL FAILURE [None]
  - RENAL IMPAIRMENT [None]
  - SOPOR [None]
